FAERS Safety Report 8356863-0 (Version None)
Quarter: 2012Q2

REPORT INFORMATION
  Report Type: 
  Country: None (occurrence: None)
  Receive Date: 20120510
  Receipt Date: 20120504
  Transmission Date: 20120825
  Serious: Yes (Hospitalization)
  Sender: FDA-Public Use
  Company Number: 2012SP017655

PATIENT
  Age: 44 Year
  Sex: Male
  Weight: 110 kg

DRUGS (20)
  1. AVASTIN [Suspect]
     Indication: GLIOBLASTOMA MULTIFORME
     Dosage: 1230 MG;QOW;IV ; 1230 MG;QOW;IV
     Route: 042
     Dates: start: 20070910, end: 20071008
  2. AVASTIN [Suspect]
     Indication: GLIOBLASTOMA MULTIFORME
     Dosage: 1230 MG;QOW;IV ; 1230 MG;QOW;IV
     Route: 042
     Dates: start: 20071029, end: 20071029
  3. HYDROCHLOROTHIAZIDE [Concomitant]
  4. DECADRON [Concomitant]
  5. DIFLUCAN [Concomitant]
  6. BACLOFEN [Concomitant]
  7. TEMODAR [Suspect]
     Indication: GLIOBLASTOMA MULTIFORME
     Dosage: 50 MG/M2;QD;PO ; 50 MG/M2;QD;PO
     Route: 048
     Dates: start: 20071029, end: 20071102
  8. TEMODAR [Suspect]
     Indication: GLIOBLASTOMA MULTIFORME
     Dosage: 50 MG/M2;QD;PO ; 50 MG/M2;QD;PO
     Route: 048
     Dates: start: 20070910, end: 20071013
  9. FLEXERIL [Concomitant]
  10. COLACE [Concomitant]
  11. ZESTRIL [Concomitant]
  12. NEXIUM [Concomitant]
  13. AMBIEN [Concomitant]
  14. VIOKASE 16 [Concomitant]
  15. PROTONIX [Concomitant]
  16. MIRALAX [Concomitant]
  17. XANAX [Concomitant]
  18. LEXAPRO [Concomitant]
  19. ACTIGALL [Concomitant]
  20. LANTUS [Concomitant]

REACTIONS (11)
  - GLIOBLASTOMA MULTIFORME [None]
  - PANCREATITIS ACUTE [None]
  - BLOOD ALBUMIN DECREASED [None]
  - BLOOD BILIRUBIN INCREASED [None]
  - HYPERGLYCAEMIA [None]
  - PLATELET COUNT DECREASED [None]
  - BLOOD PRESSURE INCREASED [None]
  - NEOPLASM PROGRESSION [None]
  - CHOLELITHIASIS [None]
  - HAEMOGLOBIN DECREASED [None]
  - BLOOD CALCIUM DECREASED [None]
